FAERS Safety Report 16711675 (Version 1)
Quarter: 2019Q3

REPORT INFORMATION
  Report Type: Spontaneous
  Country: FR (occurrence: FR)
  Receive Date: 20190816
  Receipt Date: 20190816
  Transmission Date: 20191004
  Serious: No
  Sender: FDA-Public Use
  Company Number: FR-JNJFOC-20190817845

PATIENT
  Age: 1 Year
  Sex: Female

DRUGS (1)
  1. DUROGESIC [Suspect]
     Active Substance: FENTANYL
     Indication: PAIN
     Dosage: ; IN TOTAL
     Route: 062
     Dates: start: 20190723, end: 2019

REACTIONS (3)
  - Incorrect dose administered [Recovered/Resolved]
  - Bradypnoea [Recovered/Resolved]
  - Medication error [Recovered/Resolved]

NARRATIVE: CASE EVENT DATE: 20190723
